FAERS Safety Report 5114511-7 (Version None)
Quarter: 2006Q3

REPORT INFORMATION
  Report Type: 
  Country: None (occurrence: None)
  Receive Date: 20060921
  Receipt Date: 20060807
  Transmission Date: 20061208
  Serious: Yes (Other)
  Sender: FDA-Public Use
  Company Number: CHPA2006US07550

PATIENT
  Sex: Female

DRUGS (5)
  1. TRANSDERM SCOP [Suspect]
     Dosage: SEE IMAGE
     Route: 062
     Dates: start: 20060718, end: 20060723
  2. TRANSDERM SCOP [Suspect]
     Dosage: SEE IMAGE
     Route: 062
     Dates: start: 20060723, end: 20060729
  3. TRANSDERM SCOP [Suspect]
     Dosage: SEE IMAGE
     Route: 062
     Dates: start: 20040601
  4. DOXEPIN [Concomitant]
  5. BONINE (MECLOZINE HYDROCHLORIDE) [Concomitant]

REACTIONS (18)
  - AMNESIA [None]
  - BALANCE DISORDER [None]
  - CONFUSIONAL STATE [None]
  - DIZZINESS [None]
  - DYSKINESIA [None]
  - DYSPNOEA [None]
  - FALL [None]
  - GAIT DISTURBANCE [None]
  - HEART RATE DECREASED [None]
  - MUSCLE CONTRACTURE [None]
  - MUSCULAR WEAKNESS [None]
  - MYDRIASIS [None]
  - RASH [None]
  - SENSATION OF HEAVINESS [None]
  - SKIN REACTION [None]
  - TRANSIENT ISCHAEMIC ATTACK [None]
  - TREMOR [None]
  - VISION BLURRED [None]
